FAERS Safety Report 14242082 (Version 1)
Quarter: 2017Q4

REPORT INFORMATION
  Report Type: Spontaneous
  Country: US (occurrence: US)
  Receive Date: 20171130
  Receipt Date: 20171130
  Transmission Date: 20180321
  Serious: Yes (Other)
  Sender: FDA-Public Use
  Company Number: None

PATIENT
  Age: 72 Year
  Sex: Male
  Weight: 61.2 kg

DRUGS (4)
  1. ATORVASTATIN [Suspect]
     Active Substance: ATORVASTATIN
     Indication: MYOCARDIAL ISCHAEMIA
     Dosage: ?          QUANTITY:1 TABLET(S);?
     Route: 048
     Dates: start: 20120401, end: 20171123
  2. ENALAPRIL [Concomitant]
     Active Substance: ENALAPRIL
  3. TAMSULOSIN [Concomitant]
     Active Substance: TAMSULOSIN
  4. ASPIRIN. [Concomitant]
     Active Substance: ASPIRIN

REACTIONS (8)
  - Muscle spasms [None]
  - Blister [None]
  - Rash [None]
  - Arthritis [None]
  - Mobility decreased [None]
  - Skin induration [None]
  - Skin mass [None]
  - Oedema peripheral [None]

NARRATIVE: CASE EVENT DATE: 20171114
